FAERS Safety Report 7285916-3 (Version None)
Quarter: 2011Q1

REPORT INFORMATION
  Report Type: 
  Country: None (occurrence: None)
  Receive Date: 20110210
  Receipt Date: 20110201
  Transmission Date: 20110831
  Serious: Yes (Other)
  Sender: FDA-Public Use
  Company Number: JP-MERCK-1012USA03343

PATIENT
  Age: 58 Year
  Sex: Female

DRUGS (8)
  1. JANUVIA [Suspect]
     Indication: TYPE 2 DIABETES MELLITUS
     Route: 048
     Dates: start: 20101210, end: 20101213
  2. ZANTAC [Concomitant]
     Route: 065
  3. BASEN [Concomitant]
     Route: 065
  4. ACTOS [Concomitant]
     Route: 065
  5. MICARDIS [Concomitant]
     Route: 065
  6. ASPIRIN [Concomitant]
     Route: 065
  7. LIPITOR [Concomitant]
     Route: 065
  8. PLAVIX [Concomitant]
     Route: 065

REACTIONS (1)
  - RENAL FAILURE ACUTE [None]
